FAERS Safety Report 6812688-6 (Version None)
Quarter: 2010Q3

REPORT INFORMATION
  Report Type: 
  Country: None (occurrence: None)
  Receive Date: 20100701
  Receipt Date: 20100623
  Transmission Date: 20110219
  Serious: Yes (Other)
  Sender: FDA-Public Use
  Company Number: CH-ROCHE-711610

PATIENT
  Age: 70 Year
  Sex: Female
  Weight: 85 kg

DRUGS (7)
  1. BONIVA [Suspect]
     Indication: OSTEOPOROSIS POSTMENOPAUSAL
     Route: 041
     Dates: start: 20071022, end: 20100504
  2. MARCUMAR [Concomitant]
     Dosage: DOSIS UND BEGINN DER THERAPIE UNBEKANNT
  3. CALCIMAGON-D3 [Concomitant]
     Dosage: BEGINN DER THERAPIE NICHT BEKANNT
     Route: 048
  4. SORTIS [Concomitant]
     Dosage: BEGINN DER THERAPIE NICHT BEKANNT
     Route: 048
  5. TRAMUNDIN [Concomitant]
     Dosage: BEGINN DER THERAPIE NICHT BEKANNT
     Route: 048
  6. DAFALGAN [Concomitant]
     Route: 048
  7. LISINOPRIL [Concomitant]
     Dosage: BEGINN DER THERAPIE NICHT BEKANNT
     Route: 048

REACTIONS (4)
  - BLOOD PRESSURE DECREASED [None]
  - MALAISE [None]
  - PARAESTHESIA [None]
  - TYPE I HYPERSENSITIVITY [None]
